FAERS Safety Report 15953010 (Version 1)
Quarter: 2019Q1

REPORT INFORMATION
  Report Type: Spontaneous
  Country: US (occurrence: US)
  Receive Date: 20190212
  Receipt Date: 20190212
  Transmission Date: 20190417
  Serious: Yes (Hospitalization)
  Sender: FDA-Public Use
  Company Number: US-AMGEN-USASP2019019038

PATIENT
  Age: 12 Year
  Sex: Female

DRUGS (2)
  1. NEUPOGEN [Suspect]
     Active Substance: FILGRASTIM
     Indication: PRODUCT USED FOR UNKNOWN INDICATION
     Dosage: 0.63 ML, UNK
     Route: 065
     Dates: start: 201812
  2. NEUPOGEN [Suspect]
     Active Substance: FILGRASTIM
     Dosage: 0.63 ML, UNK
     Route: 065

REACTIONS (3)
  - Unevaluable event [Unknown]
  - Wrong technique in product usage process [Unknown]
  - Accidental exposure to product [Unknown]

NARRATIVE: CASE EVENT DATE: 20190201
